FAERS Safety Report 11836360 (Version 1)
Quarter: 2015Q4

REPORT INFORMATION
  Report Type: Spontaneous
  Country: US (occurrence: None)
  Receive Date: 20151214
  Receipt Date: 20151214
  Transmission Date: 20160305
  Serious: Yes (Hospitalization)
  Sender: FDA-Public Use
  Company Number: None

PATIENT
  Age: 29 Year
  Sex: Male
  Weight: 230 kg

DRUGS (3)
  1. FAMOTIDINE. [Concomitant]
     Active Substance: FAMOTIDINE
  2. LEVOFLOXACIN. [Concomitant]
     Active Substance: LEVOFLOXACIN
  3. PROPOFOL. [Suspect]
     Active Substance: PROPOFOL
     Indication: SEDATION
     Dosage: 40 MCG/KG/MIN
     Route: 042
     Dates: start: 20151205, end: 20151207

REACTIONS (5)
  - Lactic acidosis [None]
  - Acute kidney injury [None]
  - Rhabdomyolysis [None]
  - Propofol infusion syndrome [None]
  - Dialysis [None]

NARRATIVE: CASE EVENT DATE: 20151205
